FAERS Safety Report 4668460-9 (Version None)
Quarter: 2005Q2

REPORT INFORMATION
  Report Type: 
  Country: None (occurrence: None)
  Receive Date: 20050519
  Receipt Date: 20050513
  Transmission Date: 20051028
  Serious: Yes (Other)
  Sender: FDA-Public Use
  Company Number: 200511361BCC

PATIENT
  Age: 49 Year
  Sex: Male
  Weight: 88.4514 kg

DRUGS (2)
  1. ORIGINAL ALKA SELTZER TABLETS [Suspect]
     Indication: DYSPEPSIA
     Dosage: 650 MG, BID, ORAL
     Route: 048
     Dates: start: 20050201
  2. ATENOLOL [Concomitant]

REACTIONS (1)
  - DEAFNESS UNILATERAL [None]
